FAERS Safety Report 9412986 (Version 1)
Quarter: 2013Q3

REPORT INFORMATION
  Report Type: Spontaneous
  Country: NO (occurrence: NO)
  Receive Date: 20130722
  Receipt Date: 20130722
  Transmission Date: 20140515
  Serious: Yes (Death)
  Sender: FDA-Public Use
  Company Number: NO-PFIZER INC-2013211190

PATIENT
  Sex: Female
  Weight: 54 kg

DRUGS (5)
  1. XANOR [Suspect]
  2. OXYCONTIN [Suspect]
     Dosage: 80 MG, UNK
     Route: 042
  3. CLONAZEPAM [Suspect]
  4. DIAZEPAM [Suspect]
  5. CANNABIS [Suspect]
     Dosage: UNK
     Route: 042

REACTIONS (4)
  - Incorrect route of drug administration [Fatal]
  - Toxicity to various agents [Fatal]
  - Drug abuse [Fatal]
  - Haematoma [Unknown]
